FAERS Safety Report 5752770-8 (Version None)
Quarter: 2008Q2

REPORT INFORMATION
  Report Type: 
  Country: None (occurrence: None)
  Receive Date: 20080529
  Receipt Date: 20080517
  Transmission Date: 20081010
  Serious: Yes (Other)
  Sender: FDA-Public Use
  Company Number: US-PFIZER INC-2008042764

PATIENT
  Sex: Female
  Weight: 62.7 kg

DRUGS (6)
  1. CHANTIX [Suspect]
     Indication: SMOKING CESSATION THERAPY
     Route: 048
     Dates: start: 20080301, end: 20080401
  2. EFFEXOR [Concomitant]
  3. CLONAZEPAM [Concomitant]
     Indication: ANXIETY
  4. REMERON [Concomitant]
  5. PLAVIX [Concomitant]
     Indication: MYOCARDIAL INFARCTION
  6. TOPROL-XL [Concomitant]

REACTIONS (3)
  - DYSPHAGIA [None]
  - GINGIVAL OPERATION [None]
  - PROCEDURAL PAIN [None]
